FAERS Safety Report 9008571 (Version 3)
Quarter: 2013Q1

REPORT INFORMATION
  Report Type: Spontaneous
  Country: US (occurrence: US)
  Receive Date: 20130111
  Receipt Date: 20130319
  Transmission Date: 20140127
  Serious: Yes (Other)
  Sender: FDA-Public Use
  Company Number: US-PFIZER INC-2013010011

PATIENT
  Age: 73 Year
  Sex: Female
  Weight: 66.21 kg

DRUGS (22)
  1. PREMARIN VAGINAL CREAM [Suspect]
     Indication: VULVOVAGINAL DRYNESS
     Dosage: 0.625 MG, 1X/DAY
     Route: 067
     Dates: start: 20121126, end: 20121126
  2. PREMARIN VAGINAL CREAM [Suspect]
     Indication: VULVOVAGINAL DISCOMFORT
     Dosage: 1 G, TWICE WEEKLY
     Route: 067
     Dates: start: 20121126, end: 20121126
  3. PREMARIN VAGINAL CREAM [Suspect]
     Indication: ATROPHIC VULVOVAGINITIS
  4. ISOSORBIDE [Concomitant]
     Indication: HYPERTENSION
     Dosage: 60 MG, 2X/DAY
  5. ZOVIRAX [Concomitant]
     Dosage: 200 MG, 1X/DAY
     Route: 048
  6. XANAX [Concomitant]
     Dosage: 0.25 MG, 3X/DAY
     Route: 048
  7. ASPIRIN [Concomitant]
     Dosage: 81 MG, 1X/DAY
     Route: 048
  8. FIORICET [Concomitant]
     Dosage: 1 DF, 3-4 TIMES A DAY
  9. CELEXA [Concomitant]
     Dosage: 20 MG, 1X/DAY
     Route: 048
  10. CATAPRES [Concomitant]
     Dosage: 0.1 MG, 2X/DAY
     Route: 048
  11. BENTYL [Concomitant]
     Dosage: 20 MG, 2X/DAY
     Route: 048
  12. LASIX [Concomitant]
     Dosage: 20 MG, 2X/DAY
     Route: 048
  13. NEURONTIN [Concomitant]
     Dosage: 400 MG, 1 CAPSULE 5 TIMES DAILY
     Route: 048
  14. HYDROCODONE W/ACETAMINOPHEN [Concomitant]
     Indication: PAIN
     Dosage: TAKE 1-2 TABLETS EVERY 6 HOURS AS NEEDED
     Route: 048
  15. ISOSORBIDE MONONITRATE [Concomitant]
     Dosage: 120 MG, 2X/DAY
  16. LIDODERM [Concomitant]
     Dosage: 5%, 1 PATCH EVERY 24 HOURS
  17. IMODIUM A-D [Concomitant]
     Dosage: 2 MG, 2 TIMES DAILY AS NEEDED
     Route: 048
  18. MIRALAX [Concomitant]
     Dosage: 17 G DAILY AS NEEDED
     Route: 048
  19. INDERAL [Concomitant]
     Dosage: 20 MG, 3X/DAY
     Route: 048
  20. COZAAR [Concomitant]
     Dosage: 50 MG, 2X/DAY
     Route: 048
  21. NITRO-BID [Concomitant]
     Indication: HYPERTENSION
     Dosage: 2% 1 INCH ONTO THE SKIN DAILY AS NEEDED
     Route: 061
  22. OMEPRAZOLE [Concomitant]
     Dosage: 20 MG, 2X/DAY
     Route: 048

REACTIONS (5)
  - Blood pressure increased [Recovered/Resolved]
  - Feeling hot [Recovered/Resolved]
  - Vulvovaginal burning sensation [Recovered/Resolved]
  - Tremor [Recovered/Resolved]
  - Nausea [Unknown]
